FAERS Safety Report 18034130 (Version 1)
Quarter: 2020Q3

REPORT INFORMATION
  Report Type: Report from Study
  Country: US (occurrence: US)
  Receive Date: 20200716
  Receipt Date: 20200716
  Transmission Date: 20201103
  Serious: Yes (Other)
  Sender: FDA-Public Use
  Company Number: US-BAUSCH-BL-2020-019692

PATIENT
  Age: 57 Year
  Sex: Female
  Weight: 95.79 kg

DRUGS (3)
  1. PREDNISONE. [Concomitant]
     Active Substance: PREDNISONE
     Indication: PRODUCT USED FOR UNKNOWN INDICATION
     Route: 048
  2. APRISO [Suspect]
     Active Substance: MESALAMINE
     Indication: COLITIS ULCERATIVE
     Dosage: TWO CAPSULES ONCE DAILY
     Route: 048
     Dates: start: 20200514, end: 20200702
  3. APRISO [Suspect]
     Active Substance: MESALAMINE
     Dosage: DOSE REDUCED TO ONE CAPSULES ONCE DAILY
     Route: 048
     Dates: start: 20200703, end: 20200708

REACTIONS (4)
  - Haemorrhage [Not Recovered/Not Resolved]
  - Intentional product use issue [Unknown]
  - Therapy interrupted [Unknown]
  - Product prescribing error [Unknown]

NARRATIVE: CASE EVENT DATE: 20200514
